APPROVED DRUG PRODUCT: THEOPHYLLINE
Active Ingredient: THEOPHYLLINE
Strength: 80MG/15ML
Dosage Form/Route: SOLUTION;ORAL
Application: A091156 | Product #001 | TE Code: AA
Applicant: CHARTWELL MOLECULAR HOLDINGS LLC
Approved: Apr 13, 2011 | RLD: No | RS: Yes | Type: RX